FAERS Safety Report 11837669 (Version 2)
Quarter: 2015Q4

REPORT INFORMATION
  Report Type: Report from Study
  Country: US (occurrence: US)
  Receive Date: 20151215
  Receipt Date: 20151229
  Transmission Date: 20160305
  Serious: Yes (Hospitalization, Other)
  Sender: FDA-Public Use
  Company Number: US-BIOGEN-2010BI007842

PATIENT
  Age: 49 Year
  Sex: Female
  Weight: 62.2 kg

DRUGS (1)
  1. AVONEX [Suspect]
     Active Substance: INTERFERON BETA-1A
     Indication: MULTIPLE SCLEROSIS
     Route: 030
     Dates: start: 20100201, end: 20100222

REACTIONS (25)
  - Pneumonia [Recovered/Resolved]
  - Bronchitis [Recovered/Resolved]
  - Fibromyalgia [Not Recovered/Not Resolved]
  - Serum serotonin decreased [Unknown]
  - Somnolence [Recovered/Resolved]
  - Hyperaesthesia [Recovered/Resolved]
  - Muscular weakness [Unknown]
  - Hypersensitivity [Unknown]
  - Influenza like illness [Recovered/Resolved]
  - Hair colour changes [Not Recovered/Not Resolved]
  - Musculoskeletal disorder [Unknown]
  - Chronic obstructive pulmonary disease [Recovered/Resolved]
  - Multiple sclerosis [Not Recovered/Not Resolved]
  - Encephalopathy [Recovered/Resolved]
  - Confusional state [Not Recovered/Not Resolved]
  - Respiratory disorder [Unknown]
  - Spinal column stenosis [Not Recovered/Not Resolved]
  - Intervertebral disc degeneration [Not Recovered/Not Resolved]
  - Paraesthesia [Unknown]
  - Acute kidney injury [Recovered/Resolved]
  - Blood pressure increased [Recovered/Resolved]
  - Muscle rigidity [Recovered/Resolved]
  - Tremor [Unknown]
  - Myocardial infarction [Recovered/Resolved]
  - Hypoaesthesia [Not Recovered/Not Resolved]

NARRATIVE: CASE EVENT DATE: 201002
